FAERS Safety Report 18061152 (Version 1)
Quarter: 2020Q3

REPORT INFORMATION
  Report Type: Report from Study
  Country: CA (occurrence: CA)
  Receive Date: 20200723
  Receipt Date: 20200723
  Transmission Date: 20201103
  Serious: Yes (Hospitalization, Other)
  Sender: FDA-Public Use
  Company Number: CA-ACCORD-191470

PATIENT
  Age: 51 Year
  Sex: Female

DRUGS (12)
  1. COSENTYX [Interacting]
     Active Substance: SECUKINUMAB
     Indication: PSORIATIC ARTHROPATHY
     Dosage: 1 EVERY 1 WEEKS
     Route: 058
  2. COSENTYX [Interacting]
     Active Substance: SECUKINUMAB
     Indication: PSORIATIC ARTHROPATHY
  3. GLICLAZIDE [Concomitant]
     Active Substance: GLICLAZIDE
     Dosage: 3 EVERY 1 DAYS
  4. IBUPROFEN. [Concomitant]
     Active Substance: IBUPROFEN
     Dosage: 2 EVERY 1 DAYS
     Route: 061
  5. SULFASALAZINE. [Concomitant]
     Active Substance: SULFASALAZINE
     Route: 048
  6. LINAGLIPTIN [Concomitant]
     Active Substance: LINAGLIPTIN
     Dosage: 1 EVERY 1 DAYS
     Route: 048
  7. MELOXICAM. [Concomitant]
     Active Substance: MELOXICAM
     Route: 048
  8. DICLOFENAC [Concomitant]
     Active Substance: DICLOFENAC
     Route: 061
  9. DESOXIMETASONE. [Concomitant]
     Active Substance: DESOXIMETASONE
     Route: 061
  10. METHOTREXATE. [Interacting]
     Active Substance: METHOTREXATE
     Indication: PRODUCT USED FOR UNKNOWN INDICATION
     Dosage: 1 EVERY 1 WEEKS
     Route: 058
  11. GLUMETZA [Concomitant]
     Active Substance: METFORMIN HYDROCHLORIDE
     Dosage: 1 EVERY 1 DAYS
  12. AMLODIPINE [Suspect]
     Active Substance: AMLODIPINE BESYLATE
     Indication: HYPERTENSION
     Dosage: 2 EVERY 1 DAYS

REACTIONS (25)
  - Cystitis [Not Recovered/Not Resolved]
  - Dizziness [Not Recovered/Not Resolved]
  - Joint swelling [Not Recovered/Not Resolved]
  - White blood cell count increased [Not Recovered/Not Resolved]
  - Abdominal pain lower [Not Recovered/Not Resolved]
  - Infection [Not Recovered/Not Resolved]
  - Malaise [Not Recovered/Not Resolved]
  - Parosmia [Not Recovered/Not Resolved]
  - Pharyngeal paraesthesia [Not Recovered/Not Resolved]
  - Blood glucose increased [Not Recovered/Not Resolved]
  - Ill-defined disorder [Not Recovered/Not Resolved]
  - Urinary tract infection [Not Recovered/Not Resolved]
  - Flank pain [Not Recovered/Not Resolved]
  - Head discomfort [Not Recovered/Not Resolved]
  - Influenza like illness [Not Recovered/Not Resolved]
  - Musculoskeletal stiffness [Not Recovered/Not Resolved]
  - Pelvic pain [Not Recovered/Not Resolved]
  - Urine output decreased [Not Recovered/Not Resolved]
  - Pyelonephritis [Not Recovered/Not Resolved]
  - Burning sensation [Not Recovered/Not Resolved]
  - Drug interaction [Unknown]
  - Blood pressure increased [Not Recovered/Not Resolved]
  - Oropharyngeal pain [Not Recovered/Not Resolved]
  - Cough [Not Recovered/Not Resolved]
  - Stress [Not Recovered/Not Resolved]
